FAERS Safety Report 5339911-1 (Version None)
Quarter: 2007Q2

REPORT INFORMATION
  Report Type: 
  Country: None (occurrence: None)
  Receive Date: 20070531
  Receipt Date: 20070522
  Transmission Date: 20071010
  Serious: Yes (Death)
  Sender: FDA-Public Use
  Company Number: US-ROCHE-497965

PATIENT
  Age: 84 Year
  Sex: Female

DRUGS (4)
  1. BONIVA [Suspect]
     Indication: DRUG USE FOR UNKNOWN INDICATION
     Dosage: PATIENT TOOK FOUR DOSES.
     Route: 065
  2. UNSPECIFIED MEDICATION [Concomitant]
     Indication: HYPERTENSION
  3. UNSPECIFIED MEDICATION [Concomitant]
  4. UNSPECIFIED MEDICATION [Concomitant]
     Indication: PAIN

REACTIONS (3)
  - DYSPHAGIA [None]
  - VOMITING [None]
  - WEIGHT DECREASED [None]
